FAERS Safety Report 6570852-8 (Version None)
Quarter: 2010Q1

REPORT INFORMATION
  Report Type: 
  Country: None (occurrence: None)
  Receive Date: 20100203
  Receipt Date: 20100203
  Transmission Date: 20100710
  Serious: Yes (Life-Threatening)
  Sender: FDA-Public Use
  Company Number: None

PATIENT
  Age: 54 Year
  Sex: Female
  Weight: 110 kg

DRUGS (1)
  1. ALTEPLASE 100 MG GENENTECH [Suspect]
     Indication: ISCHAEMIC STROKE
     Dosage: 90 MG X 1 DOSE IV DRIP
     Route: 041
     Dates: start: 20091214, end: 20091214

REACTIONS (4)
  - ANGIOEDEMA [None]
  - DYSPNOEA [None]
  - MUCOSAL HAEMORRHAGE [None]
  - POST PROCEDURAL COMPLICATION [None]
